FAERS Safety Report 10473773 (Version 1)
Quarter: 2014Q3

REPORT INFORMATION
  Report Type: Spontaneous
  Country: US (occurrence: US)
  Receive Date: 20140924
  Receipt Date: 20140924
  Transmission Date: 20150326
  Serious: Yes (Other)
  Sender: FDA-Public Use
  Company Number: PHHY2014US123808

PATIENT
  Age: 67 Year
  Sex: Female

DRUGS (3)
  1. BEVACIZUMAB [Suspect]
     Active Substance: BEVACIZUMAB
     Indication: NON-SMALL CELL LUNG CANCER
     Dosage: 15 MG/KG, UNK
  2. PEMETREXED [Suspect]
     Active Substance: PEMETREXED
     Indication: NON-SMALL CELL LUNG CANCER
  3. CARBOPLATIN. [Suspect]
     Active Substance: CARBOPLATIN
     Indication: NON-SMALL CELL LUNG CANCER

REACTIONS (6)
  - Nephropathy [Unknown]
  - Tubulointerstitial nephritis [Unknown]
  - Renal impairment [Recovered/Resolved]
  - Renal failure acute [Unknown]
  - Renal ischaemia [Unknown]
  - Hypertension [Not Recovered/Not Resolved]
